FAERS Safety Report 19209856 (Version 2)
Quarter: 2021Q2

REPORT INFORMATION
  Report Type: Spontaneous
  Country: US (occurrence: US)
  Receive Date: 20210504
  Receipt Date: 20210517
  Transmission Date: 20210717
  Serious: No
  Sender: FDA-Public Use
  Company Number: US-TEVA-2021-US-1903639

PATIENT
  Age: 83 Year
  Sex: Female
  Weight: 77.11 kg

DRUGS (1)
  1. AJOVY [Suspect]
     Active Substance: FREMANEZUMAB-VFRM
     Indication: MIGRAINE
     Dosage: 225 MG / 1.5 ML
     Route: 065
     Dates: end: 2021

REACTIONS (4)
  - Drug ineffective [Unknown]
  - Fatigue [Unknown]
  - Weight increased [Unknown]
  - Frustration tolerance decreased [Unknown]

NARRATIVE: CASE EVENT DATE: 2021
